FAERS Safety Report 24557016 (Version 1)
Quarter: 2024Q4

REPORT INFORMATION
  Report Type: Spontaneous
  Country: ES (occurrence: ES)
  Receive Date: 20241028
  Receipt Date: 20241028
  Transmission Date: 20250115
  Serious: Yes (Hospitalization, Other)
  Sender: AUROBINDO
  Company Number: ES-SANDOZ-SDZ2024ES084826

PATIENT
  Age: 12 Year
  Sex: Male

DRUGS (4)
  1. ARIPIPRAZOLE [Suspect]
     Active Substance: ARIPIPRAZOLE
     Indication: Tic
     Dosage: UNK UNK, EVERY WEEK
     Route: 065
  2. ARIPIPRAZOLE [Suspect]
     Active Substance: ARIPIPRAZOLE
     Indication: Tourette^s disorder
  3. METHYLPHENIDATE [Suspect]
     Active Substance: METHYLPHENIDATE
     Indication: Tic
     Dosage: UNK UNK, EVERY WEEK
     Route: 065
  4. ATOMOXETINE [Concomitant]
     Active Substance: ATOMOXETINE HYDROCHLORIDE
     Indication: Attention deficit hyperactivity disorder
     Dosage: UNK
     Route: 065

REACTIONS (9)
  - Tourette^s disorder [Recovered/Resolved]
  - Decreased appetite [Unknown]
  - Insomnia [Unknown]
  - Tic [Recovered/Resolved]
  - Condition aggravated [Recovered/Resolved]
  - Off label use [Unknown]
  - Product use issue [Unknown]
  - Therapy partial responder [Unknown]
  - Product use in unapproved indication [Unknown]
